FAERS Safety Report 18141545 (Version 4)
Quarter: 2024Q1

REPORT INFORMATION
  Report Type: Spontaneous
  Country: US (occurrence: US)
  Receive Date: 20200812
  Receipt Date: 20240322
  Transmission Date: 20240410
  Serious: No
  Sender: FDA-Public Use
  Company Number: US-BIOGEN-2020BI00910128

PATIENT
  Age: 35 Year
  Sex: Female

DRUGS (10)
  1. TYSABRI [Suspect]
     Active Substance: NATALIZUMAB
     Indication: Multiple sclerosis
     Route: 050
     Dates: start: 20200629, end: 20230630
  2. XANAX [Concomitant]
     Active Substance: ALPRAZOLAM
     Indication: Anxiety
     Dosage: TAKE 1 TABLET BY MOUTH THREE TIMES DAILY AS NEEDED
     Route: 050
  3. CRANBERRY [Concomitant]
     Active Substance: CRANBERRY
     Dosage: TAKE BY MOUTH ONE TIME EACH DAY
     Route: 050
  4. CYANOCOBALAMIN [Concomitant]
     Active Substance: CYANOCOBALAMIN
     Dosage: PLACE UNDER THE TONGUE 1 TIME EACH DAY
     Route: 050
  5. FISH OIL [Concomitant]
     Active Substance: FISH OIL
     Dosage: TAKE BY MOUTH ONE TIME EACH DAY
     Route: 050
  6. DRISDOL [Concomitant]
     Active Substance: ERGOCALCIFEROL
     Dosage: TAKE 50000 UNITS BY MOUTH ONE TIME PER WEEK
     Route: 050
  7. PROVIGIL [Concomitant]
     Active Substance: MODAFINIL
     Dosage: TAKE 0.5 TABLETS (100 MG TOTAL) BY MOUTH ONE TIME EACH DAY IF NEEDED (FATIGUE AND HISTORY OF MULT...
     Route: 050
  8. KESIMPTA [Concomitant]
     Active Substance: OFATUMUMAB
     Dosage: INJECT 1 PEN UNDER THE SKIN EVERY 28 DAYS
     Route: 050
  9. ZOLOFT [Concomitant]
     Active Substance: SERTRALINE HYDROCHLORIDE
     Dosage: 1 TABLET BY MOUTH EVERYDAY
     Route: 050
  10. VITAMIN B1 [Concomitant]
     Active Substance: THIAMINE HYDROCHLORIDE
     Dosage: TAKE 1TABLET (100 MG TOTAL)  BY MOUTH ONE TIME EACH DAY
     Route: 050

REACTIONS (5)
  - Hemiparaesthesia [Unknown]
  - Tunnel vision [Unknown]
  - Chest pain [Unknown]
  - Multiple sclerosis relapse [Unknown]
  - Fatigue [Unknown]

NARRATIVE: CASE EVENT DATE: 20200629
